FAERS Safety Report 4555632-7 (Version None)
Quarter: 2005Q1

REPORT INFORMATION
  Report Type: 
  Country: None (occurrence: None)
  Receive Date: 20050118
  Receipt Date: 20050114
  Transmission Date: 20050727
  Serious: Yes (Death, Hospitalization)
  Sender: FDA-Public Use
  Company Number: GXKR2004NL00633

PATIENT
  Age: 27 Year
  Sex: Female

DRUGS (2)
  1. CIPROFLOXACIN HCL [Suspect]
     Indication: INFECTION
     Dosage: 500 MG, BID,
  2. HYDROXYCHLOROQUINE SULFATE [Concomitant]

REACTIONS (18)
  - ACTIVATED PARTIAL THROMBOPLASTIN TIME PROLONGED [None]
  - ACUTE RESPIRATORY DISTRESS SYNDROME [None]
  - ALANINE AMINOTRANSFERASE INCREASED [None]
  - ASPARTATE AMINOTRANSFERASE INCREASED [None]
  - BLOOD CREATININE INCREASED [None]
  - BLOOD FIBRINOGEN DECREASED [None]
  - CARDIAC ARREST [None]
  - CREPITATIONS [None]
  - DIARRHOEA [None]
  - HAEMOGLOBIN DECREASED [None]
  - MULTI-ORGAN FAILURE [None]
  - PROTHROMBIN TIME PROLONGED [None]
  - PULMONARY OEDEMA [None]
  - PYREXIA [None]
  - RIGHT VENTRICULAR FAILURE [None]
  - SHOCK [None]
  - TOXIC EPIDERMAL NECROLYSIS [None]
  - WHITE BLOOD CELL COUNT INCREASED [None]
